FAERS Safety Report 7257630-1 (Version None)
Quarter: 2011Q1

REPORT INFORMATION
  Report Type: 
  Country: None (occurrence: None)
  Receive Date: 20110129
  Receipt Date: 20100604
  Transmission Date: 20110831
  Serious: No
  Sender: FDA-Public Use
  Company Number: US-ABBOTT-10P-163-0649488-00

PATIENT
  Sex: Female
  Weight: 81.72 kg

DRUGS (6)
  1. PREDNISONE [Concomitant]
     Indication: RHEUMATOID ARTHRITIS
     Route: 048
  2. UNKNOWN MEDICATIONS [Concomitant]
     Indication: RHEUMATOID ARTHRITIS
  3. HUMIRA [Suspect]
     Dates: start: 20100601
  4. HUMIRA [Suspect]
     Indication: RHEUMATOID ARTHRITIS
     Dates: start: 20091201
  5. UNKNOWN MEDICATIONS [Concomitant]
     Indication: HYPERTENSION
  6. UNKNOWN MEDICATIONS [Concomitant]
     Indication: DIABETES MELLITUS
     Route: 048

REACTIONS (1)
  - DRUG INEFFECTIVE [None]
